FAERS Safety Report 8875800 (Version 1)
Quarter: 2012Q4

REPORT INFORMATION
  Report Type: Report from Study
  Country: RU (occurrence: RU)
  Receive Date: 20121023
  Receipt Date: 20121023
  Transmission Date: 20130627
  Serious: Yes (Hospitalization)
  Sender: FDA-Public Use
  Company Number: RU-ROCHE-1146318

PATIENT
  Age: 54 Year
  Sex: Female
  Weight: 80 kg

DRUGS (2)
  1. PEG-INTERFERON ALFA 2A [Suspect]
     Indication: HEPATITIS C
     Dosage: last dose prior to sae on 06/sep/2012
     Route: 058
     Dates: start: 20120315, end: 20120918
  2. RIBAVIRIN [Suspect]
     Indication: HEPATITIS C
     Dosage: last dose prior to sae on 06/sep/2012
     Route: 050
     Dates: start: 20120315, end: 20120918

REACTIONS (1)
  - Hepatitis toxic [Recovering/Resolving]
